FAERS Safety Report 21338527 (Version 1)
Quarter: 2022Q3

REPORT INFORMATION
  Report Type: Spontaneous
  Country: AU (occurrence: AU)
  Receive Date: 20220915
  Receipt Date: 20220915
  Transmission Date: 20221026
  Serious: Yes (Death)
  Sender: FDA-Public Use
  Company Number: AU-NOVARTISPH-NVSC2022AU207445

PATIENT
  Age: 77 Year
  Sex: Male

DRUGS (1)
  1. METHOTREXATE [Suspect]
     Active Substance: METHOTREXATE
     Indication: Psoriasis
     Dosage: UNK UNK, QD (DAILY DOSE)
     Route: 065

REACTIONS (7)
  - Toxicity to various agents [Fatal]
  - Pallor [Unknown]
  - Temperature regulation disorder [Unknown]
  - Blister [Unknown]
  - Rash [Unknown]
  - Ulcer [Unknown]
  - Intercepted medication error [Unknown]
